FAERS Safety Report 17905303 (Version 6)
Quarter: 2020Q4

REPORT INFORMATION
  Report Type: Report from Study
  Country: US (occurrence: US)
  Receive Date: 20200616
  Receipt Date: 20201104
  Transmission Date: 20210113
  Serious: Yes (Death, Life-Threatening, Hospitalization, Disabling, Other)
  Sender: FDA-Public Use
  Company Number: US-GILEAD-2020-0455014

PATIENT
  Age: 71 Year
  Sex: Male
  Weight: 93 kg

DRUGS (17)
  1. CYCLOPHOSPHAMIDE. [Suspect]
     Active Substance: CYCLOPHOSPHAMIDE
     Indication: BONE MARROW CONDITIONING REGIMEN
     Dosage: 500
     Route: 042
     Dates: start: 20200311, end: 20200311
  2. DOCUSATE SODIUM;SENNA ALEXANDRINA [Concomitant]
     Active Substance: DOCUSATE SODIUM\SENNA LEAF
     Dosage: 8.6,MG,TWICE DAILY
     Route: 048
     Dates: start: 20200215, end: 20200513
  3. RITUXIMAB. [Suspect]
     Active Substance: RITUXIMAB
     Dosage: 743
     Route: 042
     Dates: start: 20200407, end: 20200407
  4. POLYETHYLENE GLYCOL [MACROGOL] [Concomitant]
     Active Substance: POLYETHYLENE GLYCOLS
     Dosage: 17,G,ONCE
     Route: 048
     Dates: start: 20200513, end: 20200513
  5. AXICABTAGENE CILOLEUCEL [Suspect]
     Active Substance: AXICABTAGENE CILOLEUCEL
     Indication: B-CELL LYMPHOMA
     Dosage: 68
     Route: 042
     Dates: start: 20200317, end: 20200317
  6. RITUXIMAB. [Suspect]
     Active Substance: RITUXIMAB
     Indication: CHEMOTHERAPY
     Dosage: 806 MG
     Route: 042
     Dates: start: 20200311, end: 20200311
  7. FLUDARABINE [Suspect]
     Active Substance: FLUDARABINE PHOSPHATE
     Dosage: 30
     Route: 042
     Dates: start: 20200312, end: 20200312
  8. MESNA. [Suspect]
     Active Substance: MESNA
     Indication: PROPHYLAXIS
     Dosage: 500
     Route: 042
     Dates: start: 20200311, end: 20200312
  9. MESNA. [Suspect]
     Active Substance: MESNA
     Dosage: 500
     Route: 042
     Dates: start: 20200312, end: 20200312
  10. CYCLOPHOSPHAMIDE. [Suspect]
     Active Substance: CYCLOPHOSPHAMIDE
     Dosage: 500
     Route: 042
     Dates: start: 20200312, end: 20200312
  11. MESNA. [Suspect]
     Active Substance: MESNA
     Dosage: 500
     Route: 042
     Dates: start: 20200314, end: 20200315
  12. MIRALAX [Concomitant]
     Active Substance: POLYETHYLENE GLYCOL 3350
     Dosage: 17,G,DAILY
     Route: 048
     Dates: start: 20200215, end: 20200513
  13. CYCLOPHOSPHAMIDE. [Suspect]
     Active Substance: CYCLOPHOSPHAMIDE
     Dosage: 500
     Route: 042
     Dates: start: 20200314, end: 20200314
  14. RITUXIMAB. [Suspect]
     Active Substance: RITUXIMAB
     Dosage: 780
     Route: 042
     Dates: start: 20200505, end: 20200505
  15. FLUDARABINE [Suspect]
     Active Substance: FLUDARABINE PHOSPHATE
     Indication: BONE MARROW CONDITIONING REGIMEN
     Dosage: 30
     Route: 042
     Dates: start: 20200314, end: 20200314
  16. FLUDARABINE [Suspect]
     Active Substance: FLUDARABINE PHOSPHATE
     Dosage: 30
     Route: 042
     Dates: start: 20200311, end: 20200311
  17. SENOKOT-S [Concomitant]
     Active Substance: DOCUSATE SODIUM\SENNOSIDES
     Dosage: 8.6,MG,AS NECESSARY
     Route: 048
     Dates: start: 20200215, end: 20200513

REACTIONS (14)
  - Embolism [Not Recovered/Not Resolved]
  - Depression [Not Recovered/Not Resolved]
  - Hypoxia [Not Recovered/Not Resolved]
  - Confusional state [Recovered/Resolved]
  - Hypotension [Recovered/Resolved]
  - Agitation [Recovered/Resolved]
  - B-cell lymphoma [Fatal]
  - Decreased appetite [Not Recovered/Not Resolved]
  - Hypokalaemia [Recovered/Resolved]
  - Respiratory failure [Recovered/Resolved]
  - Sepsis [Recovered/Resolved]
  - Pain [Recovered/Resolved]
  - Hypoxia [Recovered/Resolved]
  - Pleural effusion [Not Recovered/Not Resolved]

NARRATIVE: CASE EVENT DATE: 20200312
